FAERS Safety Report 8263034-5 (Version None)
Quarter: 2012Q2

REPORT INFORMATION
  Report Type: 
  Country: None (occurrence: None)
  Receive Date: 20120405
  Receipt Date: 20120402
  Transmission Date: 20120825
  Serious: Yes (Hospitalization, Disabling)
  Sender: FDA-Public Use
  Company Number: US-B.I. PHARMACEUTICALS,INC./RIDGEFIELD-2012-BP-06129BP

PATIENT
  Age: 70 Year
  Sex: Male

DRUGS (7)
  1. PRADAXA [Suspect]
     Indication: ATRIAL FIBRILLATION
     Route: 048
     Dates: start: 20110801, end: 20110902
  2. SPIRIVA [Concomitant]
     Indication: DYSPNOEA
     Dates: start: 20090101
  3. GENERIC CLARITIN [Concomitant]
     Indication: RHINITIS
  4. SINGULAIR [Concomitant]
     Indication: DYSPNOEA
  5. METOPROLOL SUCCINATE [Concomitant]
     Indication: HYPERTENSION
  6. ASPIRIN [Concomitant]
  7. SYMBICORT [Concomitant]
     Indication: DYSPNOEA

REACTIONS (2)
  - BALANCE DISORDER [None]
  - CEREBELLAR INFARCTION [None]
